FAERS Safety Report 11937006 (Version 1)
Quarter: 2016Q1

REPORT INFORMATION
  Report Type: Spontaneous
  Country: US (occurrence: US)
  Receive Date: 20160121
  Receipt Date: 20160121
  Transmission Date: 20160526
  Serious: No
  Sender: FDA-Public Use
  Company Number: US-ASTRAZENECA-2016SE02876

PATIENT
  Sex: Female

DRUGS (2)
  1. BYDUREON [Suspect]
     Active Substance: EXENATIDE
     Route: 058
  2. EPINEPHRINE. [Concomitant]
     Active Substance: EPINEPHRINE

REACTIONS (2)
  - Injection site pruritus [Unknown]
  - Blister [Unknown]
